FAERS Safety Report 18022321 (Version 3)
Quarter: 2021Q2

REPORT INFORMATION
  Report Type: Report from Study
  Country: CO (occurrence: CO)
  Receive Date: 20200714
  Receipt Date: 20210607
  Transmission Date: 20210717
  Serious: Yes (Other)
  Sender: FDA-Public Use
  Company Number: CO-INCYTE CORPORATION-2020IN006404

PATIENT

DRUGS (3)
  1. LOSARTAN. [Suspect]
     Active Substance: LOSARTAN
     Indication: HYPERTENSION
     Dosage: 50 MG, QD
     Route: 048
  2. ATORVASTATIN [Suspect]
     Active Substance: ATORVASTATIN
     Indication: PROPHYLAXIS
     Dosage: 20 MG, QD
     Route: 048
  3. JAKAVI [Suspect]
     Active Substance: RUXOLITINIB
     Indication: POLYCYTHAEMIA VERA
     Dosage: 15 MG, Q12H
     Route: 048
     Dates: start: 20170327

REACTIONS (5)
  - Feeling hot [Unknown]
  - COVID-19 [Not Recovered/Not Resolved]
  - Haemoglobin increased [Unknown]
  - Pruritus [Unknown]
  - Blood uric acid abnormal [Unknown]

NARRATIVE: CASE EVENT DATE: 202006
